FAERS Safety Report 12646588 (Version 1)
Quarter: 2016Q3

REPORT INFORMATION
  Report Type: Spontaneous
  Country: US (occurrence: US)
  Receive Date: 20160812
  Receipt Date: 20160812
  Transmission Date: 20161109
  Serious: No
  Sender: FDA-Public Use
  Company Number: US-BEH-2016072127

PATIENT
  Sex: Male
  Weight: 79.37 kg

DRUGS (7)
  1. HIZENTRA [Suspect]
     Active Substance: HUMAN IMMUNOGLOBULIN G
     Indication: PLASMA CELL MYELOMA
     Dosage: 10 G, QW
     Route: 058
     Dates: start: 20160211
  2. EPIPEN [Concomitant]
     Active Substance: EPINEPHRINE
  3. TRAMADOL. [Concomitant]
     Active Substance: TRAMADOL
  4. NEUPOGEN [Concomitant]
     Active Substance: FILGRASTIM
  5. REVLIMID [Concomitant]
     Active Substance: LENALIDOMIDE
  6. LMX                                /00033401/ [Concomitant]
  7. DIPHENHYDRAMINE. [Concomitant]
     Active Substance: DIPHENHYDRAMINE

REACTIONS (1)
  - Herpes zoster [Unknown]
